FAERS Safety Report 8440286 (Version 3)
Quarter: 2013Q4

REPORT INFORMATION
  Report Type: Spontaneous
  Country: JP (occurrence: JP)
  Receive Date: 20120305
  Receipt Date: 20131209
  Transmission Date: 20140711
  Serious: Yes (Death)
  Sender: FDA-Public Use
  Company Number: JP-PFIZER INC-2012053003

PATIENT
  Age: 23 Year
  Sex: Female
  Weight: 41.4 kg

DRUGS (4)
  1. HALCION [Suspect]
     Dosage: 0.25 MG, 36 TABLETS
  2. ROHYPNOL [Suspect]
     Dosage: 2 MG, 30 TABLETS
  3. DEPAS [Suspect]
     Dosage: 1 MG, 10 TABLETS
  4. LEXOTAN [Suspect]
     Dosage: 5 MG, 30 TABLETS

REACTIONS (2)
  - Intentional overdose [Fatal]
  - Completed suicide [Fatal]
